FAERS Safety Report 10129691 (Version 1)
Quarter: 2014Q2

REPORT INFORMATION
  Report Type: Spontaneous
  Country: US (occurrence: None)
  Receive Date: 20140425
  Receipt Date: 20140425
  Transmission Date: 20141212
  Serious: Yes (Hospitalization)
  Sender: FDA-Public Use
  Company Number: None

PATIENT
  Age: 6 Year
  Sex: Female
  Weight: 22.3 kg

DRUGS (2)
  1. BUSULFAN [Suspect]
  2. MELPHALAN [Suspect]

REACTIONS (6)
  - Respiratory failure [None]
  - Pulmonary toxicity [None]
  - Pulmonary oedema [None]
  - Pneumonia [None]
  - Acute respiratory failure [None]
  - Pneumocystis jirovecii pneumonia [None]
